FAERS Safety Report 9487008 (Version 2)
Quarter: 2013Q4

REPORT INFORMATION
  Report Type: Spontaneous
  Country: GB (occurrence: GB)
  Receive Date: 20130829
  Receipt Date: 20131205
  Transmission Date: 20140711
  Serious: Yes (Other)
  Sender: FDA-Public Use
  Company Number: GB-ACTAVIS-2013-15087

PATIENT
  Sex: Female

DRUGS (2)
  1. CO-CODAMOL [Suspect]
     Indication: PRODUCT USED FOR UNKNOWN INDICATION
     Dosage: UNK,
     Route: 065
  2. PARACETAMOL (UNKNOWN) [Suspect]
     Indication: HEADACHE
     Dosage: UNK,
     Route: 048

REACTIONS (1)
  - Dizziness [Not Recovered/Not Resolved]
